FAERS Safety Report 14517379 (Version 4)
Quarter: 2024Q3

REPORT INFORMATION
  Report Type: Report from Study
  Country: US (occurrence: US)
  Receive Date: 20180212
  Receipt Date: 20240926
  Transmission Date: 20241016
  Serious: Yes (Hospitalization, Other)
  Sender: ROCHE
  Company Number: US-ROCHE-2065618

PATIENT
  Age: 42 Year
  Sex: Female

DRUGS (7)
  1. OCREVUS [Suspect]
     Active Substance: OCRELIZUMAB
     Indication: Relapsing multiple sclerosis
     Dosage: ON 07/SEP/2017, 300 MG ON DAY 1 AND DAY 15 FOLLOWED BY 600 MG EVERY SIX MONTHS. MOST RECENT INFUSION
     Route: 042
     Dates: start: 20171006
  2. OCREVUS [Suspect]
     Active Substance: OCRELIZUMAB
     Indication: Autoimmune disorder
     Dosage: INFUSE 300MG INTRAVENOUSLY ON DAY(S) 1 AND DAY(S) 15 THEN 600 MG EVERY 6 MONTHS
     Route: 042
  3. MABTHERA [Suspect]
     Active Substance: RITUXIMAB
     Indication: Product used for unknown indication
     Route: 065
  4. MEGESTROL [Concomitant]
     Active Substance: MEGESTROL
  5. GABAPENTIN [Concomitant]
     Active Substance: GABAPENTIN
  6. LORAZEPAM [Concomitant]
     Active Substance: LORAZEPAM
  7. OMEPRAZOLE [Concomitant]
     Active Substance: OMEPRAZOLE

REACTIONS (16)
  - Dyspnoea [Unknown]
  - Seizure [Unknown]
  - Tremor [Unknown]
  - Depression [Unknown]
  - Anxiety [Unknown]
  - Muscle spasms [Unknown]
  - Hot flush [Unknown]
  - Feeling cold [Unknown]
  - Insomnia [Unknown]
  - Hypophagia [Unknown]
  - Multiple sclerosis [Unknown]
  - Product prescribing error [Unknown]
  - Optic neuritis [Unknown]
  - Endometriosis [Unknown]
  - Drug ineffective [Unknown]
  - Drug ineffective [Unknown]
